FAERS Safety Report 8168210-8 (Version None)
Quarter: 2012Q1

REPORT INFORMATION
  Report Type: 
  Country: None (occurrence: None)
  Receive Date: 20120227
  Receipt Date: 20120222
  Transmission Date: 20120608
  Serious: Yes (Other)
  Sender: FDA-Public Use
  Company Number: US-PFIZER INC-2012002960

PATIENT
  Sex: Female
  Weight: 61.678 kg

DRUGS (2)
  1. IBUPROFEN TABLETS [Suspect]
     Indication: FIBROMYALGIA
     Dosage: 2000 MG, 2X/DAY
     Route: 048
     Dates: start: 19960101
  2. ACETAMINOPHEN AND HYDROCODONE BITARTRATE [Concomitant]
     Indication: FIBROMYALGIA
     Dosage: 10/500 MG

REACTIONS (1)
  - MENINGITIS [None]
